FAERS Safety Report 9032654 (Version 1)
Quarter: 2013Q1

REPORT INFORMATION
  Report Type: Spontaneous
  Country: US (occurrence: US)
  Receive Date: 20130125
  Receipt Date: 20130125
  Transmission Date: 20140127
  Serious: Yes (Other)
  Sender: FDA-Public Use
  Company Number: US-009507513-1202USA00290

PATIENT
  Age: 5 Year
  Sex: Male
  Weight: 20 kg

DRUGS (3)
  1. SINGULAIR [Suspect]
     Indication: ASTHMA
     Dosage: 4 MG, QD
     Route: 048
  2. SINGULAIR [Suspect]
     Indication: HYPERSENSITIVITY
  3. RITALIN [Suspect]

REACTIONS (5)
  - Abnormal behaviour [Unknown]
  - Aggression [Unknown]
  - Anger [Unknown]
  - Muscle rigidity [Unknown]
  - Screaming [Unknown]
